FAERS Safety Report 11318996 (Version 1)
Quarter: 2015Q3

REPORT INFORMATION
  Report Type: Spontaneous
  Country: US (occurrence: US)
  Receive Date: 20150729
  Receipt Date: 20150729
  Transmission Date: 20151125
  Serious: No
  Sender: FDA-Public Use
  Company Number: US-DRREDDYS-USA/USA/14/0040960

PATIENT
  Age: 6 Year
  Sex: Female

DRUGS (2)
  1. OMEPRAZOLE MAGNESIUM DELAYED RELEASE OTC [Suspect]
     Active Substance: OMEPRAZOLE MAGNESIUM
     Indication: NAUSEA
     Route: 048
     Dates: start: 20140605
  2. OMEPRAZOLE MAGNESIUM DELAYED RELEASE OTC [Suspect]
     Active Substance: OMEPRAZOLE MAGNESIUM
     Indication: ABDOMINAL PAIN UPPER

REACTIONS (3)
  - Wrong technique in product usage process [Unknown]
  - Drug administered to patient of inappropriate age [Unknown]
  - No adverse event [Unknown]
